FAERS Safety Report 15880030 (Version 1)
Quarter: 2019Q1

REPORT INFORMATION
  Report Type: Spontaneous
  Country: US (occurrence: US)
  Receive Date: 20190104
  Receipt Date: 20190104
  Transmission Date: 20190417
  Serious: Yes (Hospitalization)
  Sender: FDA-Public Use
  Company Number: None

PATIENT
  Age: 52 Year
  Sex: Female

DRUGS (1)
  1. HUMIRA [Suspect]
     Active Substance: ADALIMUMAB
     Indication: GASTROINTESTINAL INFLAMMATION
     Route: 058
     Dates: start: 20181215

REACTIONS (4)
  - Pneumonia [None]
  - Device malfunction [None]
  - Incorrect dose administered by device [None]
  - Device leakage [None]
